FAERS Safety Report 7699860-0 (Version None)
Quarter: 2011Q3

REPORT INFORMATION
  Report Type: 
  Country: None (occurrence: None)
  Receive Date: 20110816
  Receipt Date: 20110803
  Transmission Date: 20111222
  Serious: Yes (Other)
  Sender: FDA-Public Use
  Company Number: MC201100325

PATIENT
  Age: 60 Year
  Sex: Male
  Weight: 93 kg

DRUGS (3)
  1. ANGIOMAX [Suspect]
     Indication: PERCUTANEOUS CORONARY INTERVENTION
     Dosage: BOLUS, FEM ACCESS PCI
     Route: 040
     Dates: start: 20110624, end: 20110624
  2. PLAVIX [Concomitant]
  3. ASPIRIN (ACETYLSACLICYLIC ACID) [Concomitant]

REACTIONS (3)
  - THROMBOSIS IN DEVICE [None]
  - CHEST PAIN [None]
  - VASCULAR GRAFT OCCLUSION [None]
